FAERS Safety Report 7903349-0 (Version None)
Quarter: 2011Q4

REPORT INFORMATION
  Report Type: 
  Country: None (occurrence: None)
  Receive Date: 20111109
  Receipt Date: 20111104
  Transmission Date: 20120403
  Serious: No
  Sender: FDA-Public Use
  Company Number: US-PFIZER INC-2011270871

PATIENT
  Sex: Female
  Weight: 68.027 kg

DRUGS (5)
  1. TOVIAZ [Suspect]
     Indication: URINARY INCONTINENCE
     Dosage: 4 MG, 1X/DAY
     Route: 048
     Dates: start: 20111027
  2. CALCIUM [Concomitant]
     Dosage: UNK
  3. MELOXICAM [Concomitant]
     Indication: PAIN
     Dosage: UNK, AS NEEDED
  4. PRILOSEC [Concomitant]
     Dosage: UNK
  5. LIBRAX [Concomitant]
     Dosage: UNK

REACTIONS (1)
  - DRUG INEFFECTIVE [None]
